FAERS Safety Report 13423388 (Version 2)
Quarter: 2017Q2

REPORT INFORMATION
  Report Type: Spontaneous
  Country: JP (occurrence: JP)
  Receive Date: 20170410
  Receipt Date: 20170605
  Transmission Date: 20170830
  Serious: Yes (Hospitalization, Other)
  Sender: FDA-Public Use
  Company Number: JP-PFIZER INC-2017090984

PATIENT
  Age: 83 Year
  Sex: Female
  Weight: 50 kg

DRUGS (3)
  1. PRECEDEX [Suspect]
     Active Substance: DEXMEDETOMIDINE HYDROCHLORIDE
     Dosage: 20 ML (60 ML/H FOR 20 MINUTES), UNK
  2. PRECEDEX [Suspect]
     Active Substance: DEXMEDETOMIDINE HYDROCHLORIDE
     Dosage: 12.5 ML (75 ML/H FOR 10 MINUTES), UNK
  3. PRECEDEX [Suspect]
     Active Substance: DEXMEDETOMIDINE HYDROCHLORIDE
     Dosage: 3 ML (6.0 ML/H FOR 30 MINUTES), UNK

REACTIONS (6)
  - Accidental overdose [Recovered/Resolved]
  - Delayed recovery from anaesthesia [Recovered/Resolved]
  - Respiratory depression [Recovered/Resolved]
  - Altered state of consciousness [Recovered/Resolved]
  - Fall [Unknown]
  - Ulna fracture [Unknown]

NARRATIVE: CASE EVENT DATE: 20170220
